FAERS Safety Report 9440323 (Version 1)
Quarter: 2013Q3

REPORT INFORMATION
  Report Type: Spontaneous
  Country: US (occurrence: US)
  Receive Date: 20130805
  Receipt Date: 20130805
  Transmission Date: 20140515
  Serious: Yes (Other)
  Sender: FDA-Public Use
  Company Number: US-PFIZER INC-2013223021

PATIENT
  Age: 52 Year
  Sex: Female
  Weight: 71 kg

DRUGS (2)
  1. EFFEXOR XR [Suspect]
     Indication: DEPRESSION
     Dosage: UNK
     Route: 048
     Dates: end: 2013
  2. EFFEXOR XR [Suspect]
     Dosage: UNK, ALTERNATE DAY
     Route: 048
     Dates: start: 2013, end: 201307

REACTIONS (2)
  - Suicidal ideation [Not Recovered/Not Resolved]
  - Rotator cuff syndrome [Unknown]
